FAERS Safety Report 17757755 (Version 2)
Quarter: 2020Q2

REPORT INFORMATION
  Report Type: Spontaneous
  Country: US (occurrence: US)
  Receive Date: 20200507
  Receipt Date: 20200623
  Transmission Date: 20200714
  Serious: Yes (Other)
  Sender: FDA-Public Use
  Company Number: US-ASTRAZENECA-2020SE53143

PATIENT
  Age: 14593 Day
  Sex: Male
  Weight: 98.4 kg

DRUGS (2)
  1. ADVAIR HFA [Concomitant]
     Active Substance: FLUTICASONE PROPIONATE\SALMETEROL XINAFOATE
     Indication: ASTHMA
     Dosage: 500/50 1 PUFF BID
     Dates: start: 20050101
  2. FASENRA [Suspect]
     Active Substance: BENRALIZUMAB
     Indication: ASTHMA
     Route: 058
     Dates: start: 20180228

REACTIONS (1)
  - Rosai-Dorfman syndrome [Not Recovered/Not Resolved]

NARRATIVE: CASE EVENT DATE: 20200303
